FAERS Safety Report 12212357 (Version 1)
Quarter: 2016Q1

REPORT INFORMATION
  Report Type: Other
  Country: US (occurrence: US)
  Receive Date: 20160325
  Receipt Date: 20160325
  Transmission Date: 20160526
  Serious: No
  Sender: FDA-Public Use
  Company Number: US-DEP_02599_2015

PATIENT
  Sex: Female

DRUGS (4)
  1. GRALISE [Suspect]
     Active Substance: GABAPENTIN
     Indication: OFF LABEL USE
     Dosage: SAMPLE PACK
     Dates: start: 20150311
  2. GRALISE [Suspect]
     Active Substance: GABAPENTIN
     Indication: INFLAMMATION
     Dosage: SAMPLE PACK
     Dates: start: 20150311
  3. GRALISE [Suspect]
     Active Substance: GABAPENTIN
     Indication: PERIPHERAL SWELLING
     Dosage: SAMPLE PACK
     Dates: start: 20150311
  4. GRALISE [Suspect]
     Active Substance: GABAPENTIN
     Indication: NEURALGIA
     Dosage: SAMPLE PACK
     Dates: start: 20150311

REACTIONS (2)
  - Incorrect dose administered [Unknown]
  - Constipation [Unknown]

NARRATIVE: CASE EVENT DATE: 201503
